FAERS Safety Report 6895052-3 (Version None)
Quarter: 2010Q3

REPORT INFORMATION
  Report Type: 
  Country: None (occurrence: None)
  Receive Date: 20100802
  Receipt Date: 20100722
  Transmission Date: 20110219
  Serious: Yes (Other)
  Sender: FDA-Public Use
  Company Number: US-SANOFI-AVENTIS-2010SA034391

PATIENT
  Age: 80 Year
  Sex: Female
  Weight: 72.57 kg

DRUGS (10)
  1. LANTUS [Suspect]
     Indication: TYPE 2 DIABETES MELLITUS
     Dosage: DOSE:25 UNIT(S)
     Route: 058
     Dates: start: 20100301
  2. SOLOSTAR [Suspect]
     Indication: TYPE 2 DIABETES MELLITUS
     Dates: start: 20100301
  3. METOPROLOL [Concomitant]
  4. LEVOXYL [Concomitant]
     Dosage: AT LUNCH TIME
  5. LIPITOR [Concomitant]
  6. PLAVIX [Concomitant]
  7. LISINOPRIL [Concomitant]
  8. TRICOR [Concomitant]
  9. FENOFIBRATE [Concomitant]
  10. FISH OIL [Concomitant]
     Dosage: 3 A DAY

REACTIONS (1)
  - CARDIAC PACEMAKER INSERTION [None]
